FAERS Safety Report 5723490-0 (Version None)
Quarter: 2008Q2

REPORT INFORMATION
  Report Type: 
  Country: None (occurrence: None)
  Receive Date: 20080425
  Receipt Date: 20070611
  Transmission Date: 20081010
  Serious: Yes (Death)
  Sender: FDA-Public Use
  Company Number: M7002-00005-SPO-US

PATIENT
  Sex: Male

DRUGS (1)
  1. ONTAK [Suspect]
     Dosage: INTRAVENOUS
     Route: 042

REACTIONS (1)
  - CAPILLARY LEAK SYNDROME [None]
